FAERS Safety Report 13299271 (Version 1)
Quarter: 2017Q1

REPORT INFORMATION
  Report Type: Spontaneous
  Country: US (occurrence: US)
  Receive Date: 20170306
  Receipt Date: 20170306
  Transmission Date: 20170428
  Serious: No
  Sender: FDA-Public Use
  Company Number: US-SA-2017SA025646

PATIENT

DRUGS (1)
  1. SOLIQUA [Suspect]
     Active Substance: INSULIN GLARGINE\LIXISENATIDE
     Indication: DIABETES MELLITUS
     Route: 065

REACTIONS (1)
  - Product use issue [Unknown]
